FAERS Safety Report 9178302 (Version 1)
Quarter: 2013Q1

REPORT INFORMATION
  Report Type: Spontaneous
  Country: DE (occurrence: DE)
  Receive Date: 20130321
  Receipt Date: 20130321
  Transmission Date: 20140127
  Serious: Yes (Life-Threatening)
  Sender: FDA-Public Use
  Company Number: DE-BAYER-2013-032309

PATIENT
  Age: 20 Year
  Sex: Female
  Weight: 72 kg

DRUGS (1)
  1. YAZ [Suspect]
     Indication: CONTRACEPTION
     Dosage: 1 DF (0.02MG/3MG TABLET), QD, FOR SEVERAL YEARS
     Route: 048

REACTIONS (4)
  - Cerebral infarction [Not Recovered/Not Resolved]
  - Hemiplegia [Not Recovered/Not Resolved]
  - Hemianopia [Not Recovered/Not Resolved]
  - Movement disorder [Not Recovered/Not Resolved]
